FAERS Safety Report 5758762-7 (Version None)
Quarter: 2008Q2

REPORT INFORMATION
  Report Type: 
  Country: None (occurrence: None)
  Receive Date: 20080604
  Receipt Date: 20080327
  Transmission Date: 20081010
  Serious: No
  Sender: FDA-Public Use
  Company Number: US-BAYER-200818392NA

PATIENT
  Sex: Female

DRUGS (1)
  1. AVELOX [Suspect]
     Indication: DRUG USE FOR UNKNOWN INDICATION
     Route: 048

REACTIONS (7)
  - EYE SWELLING [None]
  - HYPERSENSITIVITY [None]
  - LIP SWELLING [None]
  - SWELLING FACE [None]
  - SWOLLEN TONGUE [None]
  - TREMOR [None]
  - URTICARIA [None]
